FAERS Safety Report 4723669-0 (Version None)
Quarter: 2005Q3

REPORT INFORMATION
  Report Type: 
  Country: None (occurrence: None)
  Receive Date: 20050725
  Receipt Date: 20040609
  Transmission Date: 20060218
  Serious: Yes (Other)
  Sender: FDA-Public Use
  Company Number: 200412025JP

PATIENT
  Sex: Female
  Weight: 59 kg

DRUGS (5)
  1. ARAVA [Suspect]
     Route: 048
     Dates: start: 20031031, end: 20040514
  2. MOBIC [Concomitant]
     Indication: RHEUMATOID ARTHRITIS
     Dosage: DOSE: UNK
     Route: 048
  3. ISALON [Concomitant]
     Indication: PROPHYLAXIS
     Dosage: DOSE: 2TABLETS
     Route: 048
  4. ISALON [Concomitant]
     Indication: ULCER
     Dosage: DOSE: 2TABLETS
     Route: 048
  5. PREDONINE [Concomitant]
     Indication: RHEUMATOID ARTHRITIS
     Dosage: DOSE: UNK
     Route: 048

REACTIONS (1)
  - MENORRHAGIA [None]
